FAERS Safety Report 6044614-4 (Version None)
Quarter: 2009Q1

REPORT INFORMATION
  Report Type: 
  Country: None (occurrence: None)
  Receive Date: 20090120
  Receipt Date: 20090108
  Transmission Date: 20090719
  Serious: Yes (Hospitalization)
  Sender: FDA-Public Use
  Company Number: US-BIOGENIDEC-2008BI033812

PATIENT
  Age: 39 Year
  Sex: Female
  Weight: 148 kg

DRUGS (1)
  1. TYSABRI [Suspect]
     Indication: MULTIPLE SCLEROSIS
     Route: 042
     Dates: start: 20080416, end: 20081101

REACTIONS (4)
  - ACUTE SINUSITIS [None]
  - OBESITY [None]
  - POST PROCEDURAL COMPLICATION [None]
  - VOMITING [None]
